FAERS Safety Report 9353672 (Version 2)
Quarter: 2013Q4

REPORT INFORMATION
  Report Type: Spontaneous
  Country: US (occurrence: None)
  Receive Date: 20130612
  Receipt Date: 20131108
  Transmission Date: 20140711
  Serious: Yes (Hospitalization)
  Sender: FDA-Public Use
  Company Number: TIR-02123

PATIENT
  Age: 65 Year
  Sex: Male
  Weight: 71.22 kg

DRUGS (1)
  1. TIROSINT [Suspect]
     Indication: HYPOTHYROIDISM
     Dosage: ONE 100MCG CAPSULE, DAILY, ORAL
     Route: 048
     Dates: start: 201302, end: 20130520

REACTIONS (37)
  - Photophobia [None]
  - Blood pressure diastolic decreased [None]
  - Heart rate decreased [None]
  - Oxygen saturation decreased [None]
  - Self-injurious ideation [None]
  - Vision blurred [None]
  - Diplopia [None]
  - Pruritus [None]
  - Mood swings [None]
  - Psychotic disorder [None]
  - Restlessness [None]
  - Muscle spasms [None]
  - Pain in extremity [None]
  - Pain in extremity [None]
  - Arthralgia [None]
  - Skin warm [None]
  - Tinnitus [None]
  - Dysphagia [None]
  - Cold sweat [None]
  - Choking [None]
  - Hunger [None]
  - Change of bowel habit [None]
  - Dyspnoea [None]
  - Palpitations [None]
  - Temperature intolerance [None]
  - Hyperhidrosis [None]
  - Nervousness [None]
  - Insomnia [None]
  - Angina pectoris [None]
  - Muscular weakness [None]
  - Anxiety [None]
  - Weight decreased [None]
  - Tremor [None]
  - Body temperature increased [None]
  - Hyperhidrosis [None]
  - Product quality issue [None]
  - Feeling cold [None]
